FAERS Safety Report 8480102-3 (Version None)
Quarter: 2012Q2

REPORT INFORMATION
  Report Type: 
  Country: None (occurrence: None)
  Receive Date: 20120629
  Receipt Date: 20120619
  Transmission Date: 20120825
  Serious: Yes (Hospitalization, Other)
  Sender: FDA-Public Use
  Company Number: US-ELI_LILLY_AND_COMPANY-US201202006296

PATIENT
  Age: 48 Year
  Sex: Female
  Weight: 98.2 kg

DRUGS (13)
  1. ESTRADIOL [Concomitant]
  2. VITAMIN D [Concomitant]
  3. CYMBALTA [Suspect]
     Dosage: 60 MG, BID
     Dates: start: 20080409
  4. MIRALAX [Concomitant]
  5. SENOKOT [Concomitant]
  6. REMERON [Concomitant]
  7. LIPITOR [Concomitant]
  8. ATIVAN [Concomitant]
  9. PROMETHAZINE [Concomitant]
  10. ALBUTEIN [Concomitant]
  11. THYROID PREPARATIONS [Concomitant]
  12. PRILOSEC [Concomitant]
  13. AMBIEN [Concomitant]

REACTIONS (8)
  - CARDIAC DISORDER [None]
  - POST PROCEDURAL HAEMORRHAGE [None]
  - URINARY INCONTINENCE [None]
  - INCISIONAL HERNIA [None]
  - CONSTIPATION [None]
  - COAGULOPATHY [None]
  - BLOOD PRESSURE DECREASED [None]
  - CENTRAL OBESITY [None]
